FAERS Safety Report 8420836-X (Version None)
Quarter: 2012Q2

REPORT INFORMATION
  Report Type: 
  Country: None (occurrence: None)
  Receive Date: 20120530
  Receipt Date: 20120514
  Transmission Date: 20120825
  Serious: Yes (Hospitalization)
  Sender: FDA-Public Use
  Company Number: 2012DE0175

PATIENT
  Age: 65 Year
  Sex: Female

DRUGS (23)
  1. GOLD(GOLD) [Concomitant]
  2. TAMBOCOR(FLECAINIDE) [Concomitant]
  3. FRAXIPARIN(NADROPARIN CALCIUM [Concomitant]
  4. SULFSALAZIN(SULFSALAZIN) [Concomitant]
  5. METHYLPREDNISOLONE [Concomitant]
  6. BISOPROLOL FUMARATE [Concomitant]
  7. REMICADE [Concomitant]
  8. HYDROCHLOROQUIN(HYDROCHLOROQUIN) [Concomitant]
  9. LEVOFLOXACIN [Concomitant]
  10. CALCIDOC(COLECALCIFEROL) [Concomitant]
  11. BISOPROLOL FUMARATE [Concomitant]
  12. LEFLUNOMIDE [Concomitant]
  13. CYCLOSPORINE [Concomitant]
  14. METHOTREXATE [Concomitant]
  15. AZATHIOPRIN(AZATHIOPRIN) [Concomitant]
  16. CHLOROQUIN(CHLOROQUIN) [Concomitant]
  17. KINERET [Suspect]
     Indication: RHEUMATOID ARTHRITIS
     Dates: start: 20110201
  18. L-THYROSIN(L-THYROSIN) [Concomitant]
  19. CIMZIA [Concomitant]
  20. ARAVA [Concomitant]
  21. ETANERCEPT (ETANERCEPT) [Concomitant]
  22. AMPHO-MORONAL(AMPHOTERICIN B) [Concomitant]
  23. OMEPRAZOL(OMEPRAZOL) [Concomitant]

REACTIONS (10)
  - ERYSIPELAS [None]
  - MYOCARDIAL INFARCTION [None]
  - CARDIAC ARREST [None]
  - ABSCESS [None]
  - LEUKOPENIA [None]
  - GENERAL PHYSICAL HEALTH DETERIORATION [None]
  - VENTRICULAR FIBRILLATION [None]
  - LYMPHOCYTE COUNT DECREASED [None]
  - NEUTROPHIL COUNT DECREASED [None]
  - LOSS OF CONSCIOUSNESS [None]
